FAERS Safety Report 19712432 (Version 1)
Quarter: 2021Q3

REPORT INFORMATION
  Report Type: Report from Study
  Country: US (occurrence: US)
  Receive Date: 20210816
  Receipt Date: 20210816
  Transmission Date: 20211014
  Serious: No
  Sender: FDA-Public Use
  Company Number: US-SUNOVION-2018SUN005178

PATIENT
  Sex: Female

DRUGS (1)
  1. LATUDA [Suspect]
     Active Substance: LURASIDONE HYDROCHLORIDE
     Dosage: 20 MG
     Route: 048

REACTIONS (7)
  - Illness [Unknown]
  - Abnormal dreams [Unknown]
  - Nausea [Unknown]
  - Nervousness [Unknown]
  - Insomnia [Unknown]
  - Tremor [Unknown]
  - Intrusive thoughts [Unknown]
